FAERS Safety Report 11272600 (Version 2)
Quarter: 2015Q3

REPORT INFORMATION
  Report Type: Spontaneous
  Country: JP (occurrence: JP)
  Receive Date: 20150715
  Receipt Date: 20150806
  Transmission Date: 20151125
  Serious: Yes (Death, Hospitalization, Other)
  Sender: FDA-Public Use
  Company Number: JP-JNJFOC-20150709435

PATIENT
  Age: 80 Year
  Sex: Female

DRUGS (12)
  1. MARZULENE [Concomitant]
     Active Substance: SODIUM GUALENATE
     Route: 048
  2. RIZE [Concomitant]
     Active Substance: CLOTIAZEPAM
     Indication: INSOMNIA
     Route: 048
  3. VASOLAN [Concomitant]
     Active Substance: VERAPAMIL HYDROCHLORIDE
     Route: 065
     Dates: start: 20150623, end: 20150624
  4. XARELTO [Suspect]
     Active Substance: RIVAROXABAN
     Indication: CEREBROVASCULAR ACCIDENT PROPHYLAXIS
     Route: 048
     Dates: start: 20150623, end: 20150706
  5. HALCION [Concomitant]
     Active Substance: TRIAZOLAM
     Indication: ANXIETY
     Route: 048
  6. MARZULENE S [Concomitant]
     Active Substance: GLUTAMINE\SODIUM GUALENATE
     Indication: INSOMNIA
     Route: 048
  7. HALCION [Concomitant]
     Active Substance: TRIAZOLAM
     Indication: INSOMNIA
     Route: 048
  8. RIZE [Concomitant]
     Active Substance: CLOTIAZEPAM
     Indication: ANXIETY
     Route: 048
  9. NEXIUM [Concomitant]
     Active Substance: ESOMEPRAZOLE MAGNESIUM
     Indication: ATRIAL FIBRILLATION
     Route: 048
     Dates: start: 20150623, end: 20150708
  10. XARELTO [Suspect]
     Active Substance: RIVAROXABAN
     Indication: ATRIAL FIBRILLATION
     Route: 048
     Dates: start: 20150623, end: 20150706
  11. MARZULENE S [Concomitant]
     Active Substance: GLUTAMINE\SODIUM GUALENATE
     Indication: ANXIETY
     Route: 048
  12. LANIRAPID [Concomitant]
     Active Substance: METILDIGOXIN
     Indication: ATRIAL FIBRILLATION
     Route: 048
     Dates: start: 20150623, end: 20150706

REACTIONS (4)
  - Pneumonia [Fatal]
  - Multi-organ failure [Fatal]
  - Disseminated intravascular coagulation [Unknown]
  - Hepatic function abnormal [Fatal]

NARRATIVE: CASE EVENT DATE: 20150623
